FAERS Safety Report 9728557 (Version 1)
Quarter: 2013Q4

REPORT INFORMATION
  Report Type: Spontaneous
  Country: US (occurrence: US)
  Receive Date: 20131204
  Receipt Date: 20131204
  Transmission Date: 20140711
  Serious: No
  Sender: FDA-Public Use
  Company Number: US-009507513-1311USA008161

PATIENT
  Sex: Female

DRUGS (2)
  1. MIRALAX [Suspect]
     Indication: CONSTIPATION
     Dosage: UNK, UNKNOWN
     Route: 048
  2. MIRALAX [Suspect]
     Dosage: UNK, UNKNOWN
     Route: 048
     Dates: start: 20131107

REACTIONS (3)
  - Diarrhoea [Unknown]
  - Underdose [Unknown]
  - Drug effect delayed [Unknown]
